FAERS Safety Report 6676091-4 (Version None)
Quarter: 2010Q2

REPORT INFORMATION
  Report Type: 
  Country: None (occurrence: None)
  Receive Date: 20100412
  Receipt Date: 20100329
  Transmission Date: 20101027
  Serious: Yes (Other)
  Sender: FDA-Public Use
  Company Number: US-PFIZER INC-2010040447

PATIENT
  Sex: Male

DRUGS (5)
  1. CHANTIX [Suspect]
  2. NEURONTIN [Suspect]
  3. MORPHINE SULFATE [Suspect]
     Indication: PAIN
  4. CYMBALTA [Suspect]
     Indication: DEPRESSION
  5. NORCO [Suspect]
     Indication: PAIN

REACTIONS (7)
  - DEPRESSED MOOD [None]
  - DEPRESSION [None]
  - DRUG EFFECT DECREASED [None]
  - DRUG INTERACTION [None]
  - FATIGUE [None]
  - NAUSEA [None]
  - PAIN [None]
